FAERS Safety Report 9601967 (Version 15)
Quarter: 2015Q1

REPORT INFORMATION
  Report Type: Report from Study
  Country: CA (occurrence: CA)
  Receive Date: 20131007
  Receipt Date: 20150107
  Transmission Date: 20150721
  Serious: Yes (Other)
  Sender: FDA-Public Use
  Company Number: PHHY2013CA109844

PATIENT
  Age: 79 Year
  Sex: Female

DRUGS (3)
  1. SANDOSTATIN [Suspect]
     Active Substance: OCTREOTIDE ACETATE
     Dosage: 200 UG, TID (THRICE DAILY)
     Route: 058
  2. SANDOSTATIN LAR DEPOT [Suspect]
     Active Substance: OCTREOTIDE ACETATE
     Indication: PANCREATIC NEUROENDOCRINE TUMOUR
     Dosage: 30 MG, QW4 (EVERY 4 WEEKS)
     Route: 030
     Dates: start: 20131002
  3. SANDOSTATIN [Suspect]
     Active Substance: OCTREOTIDE ACETATE
     Indication: PANCREATIC NEUROENDOCRINE TUMOUR
     Dosage: 50 UG, TID (THRICE DAILY)
     Route: 058
     Dates: start: 20130824

REACTIONS (13)
  - Accident [Unknown]
  - Dehydration [Unknown]
  - Diarrhoea [Unknown]
  - Blood glucose increased [Unknown]
  - Intestinal obstruction [Unknown]
  - Malaise [Unknown]
  - Fear of eating [Unknown]
  - Fatigue [Unknown]
  - Neoplasm [Unknown]
  - Blood pressure diastolic decreased [Unknown]
  - Blood pressure increased [Unknown]
  - Hernia [Unknown]
  - Abdominal pain upper [Unknown]

NARRATIVE: CASE EVENT DATE: 20140321
